FAERS Safety Report 8636734 (Version 2)
Quarter: 2012Q4

REPORT INFORMATION
  Report Type: 
  Country: DE (occurrence: JP)
  Receive Date: 20120626
  Receipt Date: 20121113
  Transmission Date: 20130627
  Serious: Yes (Hospitalization, Other)
  Sender: FDA-Public Use
  Company Number: JP-FRI-1000030485

PATIENT
  Age: 84 Year
  Sex: Male

DRUGS (10)
  1. MEMANTINE [Suspect]
     Indication: DEMENTIA ALZHEIMER^S TYPE
     Dosage: 5 mg
     Route: 048
     Dates: start: 20120119, end: 20120202
  2. MEMANTINE [Suspect]
     Indication: DEMENTIA ALZHEIMER^S TYPE
     Dosage: 10 mg
     Route: 048
     Dates: start: 20120203, end: 20120320
  3. MEMANTINE [Suspect]
     Dosage: 5 mg
     Route: 048
     Dates: start: 20120321, end: 20120407
  4. CADUET [Concomitant]
     Indication: HYPERTENSION
     Route: 048
     Dates: start: 20101109
  5. CADUET [Concomitant]
     Indication: HYPERCHOLESTEROLAEMIA
  6. DONEPEZIL [Concomitant]
     Indication: DEMENTIA ALZHEIMER^S TYPE
     Dosage: 5 mg
     Route: 048
     Dates: start: 20090507
  7. LANSOPRAZOLE [Concomitant]
     Indication: GASTROOESOPHAGEAL REFLUX DISEASE
     Dosage: 15 mg
     Route: 048
     Dates: start: 20101209
  8. SARPOGRELATE [Concomitant]
     Indication: PERIPHERAL ARTERIAL OCCLUSIVE DISEASE
     Dosage: 200 mg
     Route: 048
     Dates: start: 20091219
  9. KONSUBEN [Concomitant]
     Indication: CONSTIPATION
     Dosage: 5 mg
     Route: 048
     Dates: start: 20111119
  10. AVELOX [Concomitant]
     Indication: PNEUMONIA
     Dosage: 400 mg
     Route: 048
     Dates: start: 20120222, end: 20120223

REACTIONS (3)
  - Inappropriate antidiuretic hormone secretion [Recovered/Resolved]
  - Pneumonia [None]
  - Blood glucose increased [None]
